FAERS Safety Report 20728710 (Version 2)
Quarter: 2022Q3

REPORT INFORMATION
  Report Type: Spontaneous
  Country: CA (occurrence: CA)
  Receive Date: 20220420
  Receipt Date: 20220713
  Transmission Date: 20221026
  Serious: Yes (Death, Other)
  Sender: FDA-Public Use
  Company Number: CA-TEVA-2022-CA-2028515

PATIENT

DRUGS (21)
  1. ETOPOSIDE [Suspect]
     Active Substance: ETOPOSIDE
     Indication: B-cell lymphoma
     Route: 065
  2. CARBOPLATIN [Suspect]
     Active Substance: CARBOPLATIN
     Indication: B-cell lymphoma
     Route: 042
  3. CISPLATIN [Suspect]
     Active Substance: CISPLATIN
     Indication: B-cell lymphoma
     Route: 042
  4. FLUDARABINE [Suspect]
     Active Substance: FLUDARABINE PHOSPHATE
     Indication: B-cell lymphoma
     Dosage: 250 MG/M2 DAILY;
     Route: 065
  5. VINCRISTINE [Suspect]
     Active Substance: VINCRISTINE
     Indication: B-cell lymphoma
     Route: 065
  6. PREDNISONE [Suspect]
     Active Substance: PREDNISONE
     Indication: B-cell lymphoma
     Route: 065
  7. BUSULFAN [Suspect]
     Active Substance: BUSULFAN
     Indication: B-cell lymphoma
     Dosage: 12.8 MG/KG DAILY;
     Route: 042
  8. IFEX [Suspect]
     Active Substance: IFOSFAMIDE
     Indication: B-cell lymphoma
     Dosage: 3 GRAM DAILY;
     Route: 042
  9. IFEX [Suspect]
     Active Substance: IFOSFAMIDE
     Route: 065
  10. NEUPOGEN [Suspect]
     Active Substance: FILGRASTIM
     Indication: B-cell lymphoma
     Route: 065
  11. NEUPOGEN [Suspect]
     Active Substance: FILGRASTIM
     Indication: Off label use
     Route: 065
  12. DOXORUBICIN HYDROCHLORIDE [Suspect]
     Active Substance: DOXORUBICIN HYDROCHLORIDE
     Indication: B-cell lymphoma
     Route: 042
  13. CYCLOPHOSPHAMIDE [Suspect]
     Active Substance: CYCLOPHOSPHAMIDE
     Indication: B-cell lymphoma
     Dosage: 2000 MILLIGRAM DAILY;
     Route: 042
  14. CYCLOPHOSPHAMIDE [Suspect]
     Active Substance: CYCLOPHOSPHAMIDE
     Route: 065
  15. RITUXIMAB [Suspect]
     Active Substance: RITUXIMAB
     Indication: B-cell lymphoma
     Route: 065
  16. RITUXIMAB [Suspect]
     Active Substance: RITUXIMAB
     Route: 042
  17. RITUXIMAB [Suspect]
     Active Substance: RITUXIMAB
     Route: 042
  18. ZEVALIN [Suspect]
     Active Substance: IBRITUMOMAB TIUXETAN
     Indication: B-cell lymphoma
     Route: 065
  19. DOXORUBICIN [Suspect]
     Active Substance: DOXORUBICIN
     Indication: B-cell lymphoma
     Route: 042
  20. BUSULFEX [Suspect]
     Active Substance: BUSULFAN
     Indication: B-cell lymphoma
     Route: 042
  21. FILGRASTIM [Suspect]
     Active Substance: FILGRASTIM
     Indication: B-cell lymphoma
     Route: 065

REACTIONS (3)
  - Meningitis tuberculous [Fatal]
  - Sepsis [Fatal]
  - Off label use [Fatal]
